FAERS Safety Report 11436033 (Version 1)
Quarter: 2015Q3

REPORT INFORMATION
  Report Type: Spontaneous
  Country: US (occurrence: US)
  Receive Date: 20150821
  Receipt Date: 20150821
  Transmission Date: 20151125
  Serious: No
  Sender: FDA-Public Use
  Company Number: US-ELI_LILLY_AND_COMPANY-US201402006650

PATIENT
  Sex: Female

DRUGS (2)
  1. PRANDIN                            /00882701/ [Concomitant]
     Active Substance: DEFLAZACORT
     Dosage: 1 DF, TID
     Route: 065
  2. HUMULIN N [Suspect]
     Active Substance: INSULIN HUMAN
     Indication: TYPE 2 DIABETES MELLITUS
     Dosage: 20 U, EACH EVENING
     Route: 065
     Dates: start: 2013

REACTIONS (1)
  - Underdose [Unknown]
